FAERS Safety Report 17277501 (Version 2)
Quarter: 2020Q2

REPORT INFORMATION
  Report Type: Report from Study
  Country: US (occurrence: US)
  Receive Date: 20200116
  Receipt Date: 20200521
  Transmission Date: 20200713
  Serious: Yes (Other)
  Sender: FDA-Public Use
  Company Number: US-KYOWAKIRIN-2020BKK000355

PATIENT

DRUGS (1)
  1. NOURIANZ [Suspect]
     Active Substance: ISTRADEFYLLINE
     Indication: PARKINSON^S DISEASE
     Dosage: 20 MG, QD
     Route: 065
     Dates: start: 2020

REACTIONS (8)
  - Tremor [Unknown]
  - Therapy non-responder [Unknown]
  - Product dose omission [Unknown]
  - Walking aid user [Unknown]
  - Nephrolithiasis [Unknown]
  - Dyskinesia [Unknown]
  - Stent placement [Unknown]
  - Gait disturbance [Unknown]

NARRATIVE: CASE EVENT DATE: 2020
